FAERS Safety Report 10950588 (Version 1)
Quarter: 2015Q1

REPORT INFORMATION
  Report Type: Spontaneous
  Country: US (occurrence: US)
  Receive Date: 20150324
  Receipt Date: 20150324
  Transmission Date: 20150721
  Serious: No
  Sender: FDA-Public Use
  Company Number: US-MALLINCKRODT-T201403926

PATIENT
  Age: 41 Year
  Sex: Male
  Weight: 81.63 kg

DRUGS (5)
  1. VISTARIL [Concomitant]
     Active Substance: HYDROXYZINE PAMOATE
     Indication: MUSCLE SPASMS
     Dosage: 50 MG, PRN
     Route: 048
  2. KLONOPIN [Concomitant]
     Active Substance: CLONAZEPAM
     Indication: SLEEP DISORDER
  3. METHADOSE [Suspect]
     Active Substance: METHADONE HYDROCHLORIDE
     Indication: PAIN
     Dosage: 10 MG, UP TO 30 TO 40 MG DAILY IF NEEDED
     Route: 048
     Dates: start: 201409, end: 201410
  4. DEXTROAMPHETAMINE                  /00016601/ [Concomitant]
     Active Substance: DEXTROAMPHETAMINE
     Indication: ATTENTION DEFICIT/HYPERACTIVITY DISORDER
     Dosage: 10 MG, BID, UP TO 30 MG DAILY IF NEEDED
     Route: 048
     Dates: start: 201409, end: 201410
  5. KLONOPIN [Concomitant]
     Active Substance: CLONAZEPAM
     Indication: IRRITABLE BOWEL SYNDROME
     Route: 048

REACTIONS (3)
  - Loss of control of legs [Recovered/Resolved]
  - Dysstasia [Recovered/Resolved]
  - Drug effect decreased [Recovered/Resolved]

NARRATIVE: CASE EVENT DATE: 201409
